FAERS Safety Report 7476111-3 (Version None)
Quarter: 2011Q2

REPORT INFORMATION
  Report Type: 
  Country: None (occurrence: None)
  Receive Date: 20110512
  Receipt Date: 20110511
  Transmission Date: 20111010
  Serious: Yes (Other)
  Sender: FDA-Public Use
  Company Number: JP-PFIZER INC-2011093305

PATIENT
  Age: 74 Year
  Sex: Female

DRUGS (2)
  1. GABAPENTIN [Suspect]
     Dosage: 300 MG/DAY
     Route: 048
  2. ETHAMBUTOL [Suspect]
     Indication: TUBERCULOSIS

REACTIONS (2)
  - VISUAL IMPAIRMENT [None]
  - MOTOR DYSFUNCTION [None]
